FAERS Safety Report 5283438-2 (Version None)
Quarter: 2007Q1

REPORT INFORMATION
  Report Type: 
  Country: None (occurrence: None)
  Receive Date: 20061226
  Receipt Date: 20061030
  Transmission Date: 20070707
  Serious: No
  Sender: FDA-Public Use
  Company Number: 2006PV024214

PATIENT
  Age: 58 Year
  Sex: Male
  Weight: 127.0072 kg

DRUGS (6)
  1. SYMLIN [Suspect]
     Indication: DIABETES MELLITUS NON-INSULIN-DEPENDENT
     Dosage: 60 MCG;TID;SC
     Route: 058
     Dates: start: 20061023
  2. METFORMIN [Concomitant]
  3. ACTOS [Concomitant]
  4. LANTUS [Concomitant]
  5. NOVOLOG [Concomitant]
  6. PRILOSEC [Concomitant]

REACTIONS (4)
  - DECREASED APPETITE [None]
  - DYSPEPSIA [None]
  - FATIGUE [None]
  - NAUSEA [None]
